FAERS Safety Report 15593037 (Version 15)
Quarter: 2020Q2

REPORT INFORMATION
  Report Type: Report from Study
  Country: US (occurrence: US)
  Receive Date: 20181107
  Receipt Date: 20200527
  Transmission Date: 20200713
  Serious: Yes (Other)
  Sender: FDA-Public Use
  Company Number: US-BRISTOL-MYERS SQUIBB COMPANY-BMS-2018-103725

PATIENT
  Age: 71 Year
  Sex: Male

DRUGS (1)
  1. APIXABAN [Suspect]
     Active Substance: APIXABAN
     Indication: CEREBROVASCULAR ACCIDENT PROPHYLAXIS
     Dosage: UNK
     Route: 065
     Dates: start: 20160515

REACTIONS (21)
  - Bladder neoplasm [Unknown]
  - Back disorder [Unknown]
  - Impaired healing [Unknown]
  - Fall [Unknown]
  - Haemorrhage [Unknown]
  - Movement disorder [Unknown]
  - Product dose omission [Unknown]
  - Influenza [Unknown]
  - Body height decreased [Unknown]
  - Knee arthroplasty [Unknown]
  - Cataract [Unknown]
  - Procedural pain [Unknown]
  - Epistaxis [Recovered/Resolved]
  - Dry mouth [Unknown]
  - Arthritis [Unknown]
  - Atrial fibrillation [Unknown]
  - Weight decreased [Unknown]
  - Face injury [Unknown]
  - Hypersensitivity [Unknown]
  - Fatigue [Unknown]
  - Memory impairment [Unknown]

NARRATIVE: CASE EVENT DATE: 201803
